FAERS Safety Report 15867551 (Version 2)
Quarter: 2019Q1

REPORT INFORMATION
  Report Type: Report from Study
  Country: US (occurrence: US)
  Receive Date: 20190125
  Receipt Date: 20190226
  Transmission Date: 20190417
  Serious: Yes (Other)
  Sender: FDA-Public Use
  Company Number: US-ROCHE-2248696

PATIENT
  Age: 41 Year
  Sex: Female
  Weight: 93.98 kg

DRUGS (24)
  1. VENTOLIN HFA ALBUTEROL SULFATE [Concomitant]
     Dosage: 108 (90) BASE, INHALE 2 PUFFS EVERY 4 HOURS AS NEEDED FOR WHEEZING
     Route: 065
  2. VITAMIN D3 [Concomitant]
     Active Substance: CHOLECALCIFEROL
     Route: 048
  3. MINIVELLE [Concomitant]
     Active Substance: ESTRADIOL
     Dosage: 0.1 MG/24 HOUR PATCH
     Route: 065
  4. SINGULAIR [Concomitant]
     Active Substance: MONTELUKAST SODIUM
     Dosage: EVERY NIGHT
     Route: 048
  5. ZITHROMAX [Concomitant]
     Active Substance: AZITHROMYCIN DIHYDRATE
     Route: 048
  6. SYNTHROID [Concomitant]
     Active Substance: LEVOTHYROXINE SODIUM
     Route: 048
  7. XOLAIR [Suspect]
     Active Substance: OMALIZUMAB
     Route: 058
     Dates: start: 20190215
  8. ALBUTEROL. [Concomitant]
     Active Substance: ALBUTEROL
  9. OSCAL [Concomitant]
     Active Substance: CALCIUM CARBONATE
     Route: 048
  10. ATROVENT [Concomitant]
     Active Substance: IPRATROPIUM BROMIDE
     Dosage: (0.02 %) TAKE 2. ML VIA NEBULIZATION 4 TIMES A DAY AS NEEDED FOR WHEEZING AND SHORTNESS OF BREATH.
     Route: 065
  11. MYCOSTATIN [Concomitant]
     Active Substance: NYSTATIN
     Dosage: 100000 UNIT/ML SUSPENSION, SWISH AND SWALLOW 5 ML 4TIMES A DAY.
     Route: 065
  12. XOLAIR [Suspect]
     Active Substance: OMALIZUMAB
     Indication: ASTHMA
     Route: 058
     Dates: start: 201706
  13. QVAR [Concomitant]
     Active Substance: BECLOMETHASONE DIPROPIONATE
     Dosage: 80 MCG/ ACTUATION , INHALE 2 PUFFS 2 TIMES A DAY
     Route: 065
  14. HYZAAR [Concomitant]
     Active Substance: HYDROCHLOROTHIAZIDE\LOSARTAN POTASSIUM
     Dosage: 50-12.5 MG PER TABLET
     Route: 065
  15. PRAVACHOL [Concomitant]
     Active Substance: PRAVASTATIN SODIUM
     Route: 048
  16. PROVENTIL [Concomitant]
     Active Substance: ALBUTEROL
     Dosage: (2.5 MG/ 3ML) 0.083 %NEBULIZER SOLTUION, TAKE 2.5 MG BY NEBULIZER EVERY 4 HOURS AS NEEDED FOR WHEZIN
     Route: 065
  17. XANAX [Concomitant]
     Active Substance: ALPRAZOLAM
     Route: 065
  18. ADVIL [Concomitant]
     Active Substance: IBUPROFEN
     Dosage: AS NEEDED
     Route: 048
  19. XOPENEX HFA [Concomitant]
     Active Substance: LEVALBUTEROL TARTRATE
     Dosage: 45 MCG/ ACTUATION , INHALE 1 TO 2 PUFFS BY NEBULIZATIO EVERY 4 HOURS AS NEEDED FOR WHEEZING.
     Route: 065
  20. XOLAIR [Suspect]
     Active Substance: OMALIZUMAB
     Indication: ASTHMA
     Dosage: SUBSEQUENT DOSES ON,12/JAN/2018, 12/FEB/2018, 23/FEB/2018, 09/MAR/2018, 22/MAR/2018, 05/APR/2018, 19
     Route: 058
     Dates: start: 20171222, end: 20181026
  21. SYMBICORT [Concomitant]
     Active Substance: BUDESONIDE\FORMOTEROL FUMARATE DIHYDRATE
  22. NUCALA [Suspect]
     Active Substance: MEPOLIZUMAB
     Indication: ASTHMA
     Route: 065
     Dates: start: 20181109, end: 20190102
  23. QVAR [Concomitant]
     Active Substance: BECLOMETHASONE DIPROPIONATE
  24. MOMETASONE FUROATE. [Concomitant]
     Active Substance: MOMETASONE FUROATE
     Dosage: 200 MCG/ACT, INHALE 1 PUFF 2 TIMES A DAY
     Route: 065

REACTIONS (12)
  - Nervousness [Unknown]
  - Injection site swelling [Recovering/Resolving]
  - Oropharyngeal pain [Unknown]
  - Malaise [Recovering/Resolving]
  - Contusion [Unknown]
  - Injection site pruritus [Unknown]
  - Asthma [Unknown]
  - Respiratory tract infection [Recovering/Resolving]
  - Paranasal sinus discomfort [Unknown]
  - Rhinorrhoea [Unknown]
  - Arthralgia [Unknown]
  - Back pain [Unknown]

NARRATIVE: CASE EVENT DATE: 201806
